FAERS Safety Report 7225712-6 (Version None)
Quarter: 2011Q1

REPORT INFORMATION
  Report Type: 
  Country: None (occurrence: None)
  Receive Date: 20110113
  Receipt Date: 20110104
  Transmission Date: 20110831
  Serious: Yes (Other)
  Sender: FDA-Public Use
  Company Number: US-JNJCH-2011000787

PATIENT
  Age: 26 Year
  Sex: Female

DRUGS (1)
  1. VISINE EYE DROPS [Suspect]
     Indication: OCULAR HYPERAEMIA
     Dosage: TEXT:1-3 DROPS DAILY
     Route: 047

REACTIONS (2)
  - EYE PAIN [None]
  - DEPENDENCE [None]
